FAERS Safety Report 16660359 (Version 4)
Quarter: 2022Q3

REPORT INFORMATION
  Report Type: Spontaneous
  Country: CA (occurrence: CA)
  Receive Date: 20190802
  Receipt Date: 20220701
  Transmission Date: 20221027
  Serious: Yes (Other)
  Sender: FDA-Public Use
  Company Number: CA-TEVA-2018-CA-983893

PATIENT
  Age: 54 Year
  Sex: Male

DRUGS (28)
  1. ATAZANAVIR [Suspect]
     Active Substance: ATAZANAVIR
     Indication: Antiretroviral therapy
     Route: 048
  2. ATAZANAVIR [Suspect]
     Active Substance: ATAZANAVIR
     Indication: HIV infection
     Route: 048
  3. ATAZANAVIR [Suspect]
     Active Substance: ATAZANAVIR
     Route: 065
  4. NEVIRAPINE [Suspect]
     Active Substance: NEVIRAPINE
     Indication: Antiretroviral therapy
     Route: 048
  5. NEVIRAPINE [Suspect]
     Active Substance: NEVIRAPINE
     Route: 065
  6. LAMIVUDINE [Suspect]
     Active Substance: LAMIVUDINE
     Indication: Antiretroviral therapy
     Route: 048
  7. LAMIVUDINE [Suspect]
     Active Substance: LAMIVUDINE
     Indication: HIV infection
     Route: 065
  8. LAMIVUDINE [Suspect]
     Active Substance: LAMIVUDINE
     Route: 048
  9. DIDANOSINE [Suspect]
     Active Substance: DIDANOSINE
     Indication: Antiretroviral therapy
     Route: 048
  10. ENFUVIRTIDE [Suspect]
     Active Substance: ENFUVIRTIDE
     Indication: HIV infection
     Route: 048
  11. ENFUVIRTIDE [Suspect]
     Active Substance: ENFUVIRTIDE
     Indication: Product used for unknown indication
     Route: 058
  12. INDINAVIR SULFATE [Suspect]
     Active Substance: INDINAVIR SULFATE
     Indication: HIV infection
     Route: 048
  13. KALETRA [Suspect]
     Active Substance: LOPINAVIR\RITONAVIR
     Indication: Antiretroviral therapy
     Route: 048
  14. KALETRA [Suspect]
     Active Substance: LOPINAVIR\RITONAVIR
     Indication: HIV infection
     Route: 065
  15. SAQUINAVIR [Suspect]
     Active Substance: SAQUINAVIR
     Indication: HIV infection
     Route: 048
  16. SAQUINAVIR [Suspect]
     Active Substance: SAQUINAVIR
     Indication: Antiretroviral therapy
     Route: 065
  17. STAVUDINE [Suspect]
     Active Substance: STAVUDINE
     Indication: HIV infection
     Route: 048
  18. STAVUDINE [Suspect]
     Active Substance: STAVUDINE
     Route: 065
  19. VIREAD [Suspect]
     Active Substance: TENOFOVIR DISOPROXIL FUMARATE
     Indication: HIV infection
     Route: 048
  20. ZIDOVUDINE [Suspect]
     Active Substance: ZIDOVUDINE
     Indication: HIV infection
     Route: 048
  21. ABACAVIR SUCCINATE [Suspect]
     Active Substance: ABACAVIR SUCCINATE
     Indication: HIV infection
     Route: 048
  22. ABACAVIR SUCCINATE [Suspect]
     Active Substance: ABACAVIR SUCCINATE
     Route: 048
  23. VIDEX EC [Suspect]
     Active Substance: DIDANOSINE
     Indication: HIV infection
     Route: 048
  24. VIRAMUNE [Suspect]
     Active Substance: NEVIRAPINE
     Indication: HIV infection
     Route: 048
  25. ZERIT [Suspect]
     Active Substance: STAVUDINE
     Indication: HIV infection
     Route: 048
  26. ZERIT [Suspect]
     Active Substance: STAVUDINE
     Route: 048
  27. ATAZANAVIR [Suspect]
     Active Substance: ATAZANAVIR
     Indication: HIV infection
     Route: 048
  28. LAMIVUDINE [Suspect]
     Active Substance: LAMIVUDINE
     Indication: HIV infection
     Route: 048

REACTIONS (7)
  - Diplopia [Not Recovered/Not Resolved]
  - Dysphagia [Not Recovered/Not Resolved]
  - Eyelid ptosis [Not Recovered/Not Resolved]
  - Lipodystrophy acquired [Not Recovered/Not Resolved]
  - Mitochondrial toxicity [Not Recovered/Not Resolved]
  - Blood lactic acid increased [Not Recovered/Not Resolved]
  - Ophthalmoplegia [Not Recovered/Not Resolved]
